FAERS Safety Report 16210516 (Version 2)
Quarter: 2019Q3

REPORT INFORMATION
  Report Type: Report from Study
  Country: US (occurrence: US)
  Receive Date: 20190418
  Receipt Date: 20190925
  Transmission Date: 20191004
  Serious: No
  Sender: FDA-Public Use
  Company Number: US-ROCHE-2290026

PATIENT
  Age: 67 Year
  Sex: Female
  Weight: 67.19 kg

DRUGS (8)
  1. OCREVUS [Suspect]
     Active Substance: OCRELIZUMAB
     Dosage: 1ST HALF DOSE;ONGOING NO
     Route: 042
     Dates: start: 20190308
  2. ALENDRONATE SODIUM. [Concomitant]
     Active Substance: ALENDRONATE SODIUM
  3. LABETALOL HCL [Concomitant]
     Active Substance: LABETALOL HYDROCHLORIDE
     Route: 065
  4. OCREVUS [Suspect]
     Active Substance: OCRELIZUMAB
     Indication: MULTIPLE SCLEROSIS
     Route: 042
     Dates: start: 20190306
  5. OCREVUS [Suspect]
     Active Substance: OCRELIZUMAB
     Dosage: 2ND HALF DOSE; ONGOING NO
     Route: 042
     Dates: start: 20190402
  6. ATORVASTATIN CALCIUM. [Concomitant]
     Active Substance: ATORVASTATIN CALCIUM
     Route: 065
  7. CHLORTHALIDONE. [Concomitant]
     Active Substance: CHLORTHALIDONE
     Route: 065
  8. GILENYA [Concomitant]
     Active Substance: FINGOLIMOD HYDROCHLORIDE
     Route: 065

REACTIONS (13)
  - Haemoptysis [Unknown]
  - Amnesia [Unknown]
  - Vomiting [Unknown]
  - Malaise [Unknown]
  - Insomnia [Unknown]
  - Gastroenteritis viral [Unknown]
  - Malaise [Unknown]
  - Visual impairment [Unknown]
  - Radial nerve palsy [Not Recovered/Not Resolved]
  - Weight decreased [Unknown]
  - Pruritus [Recovered/Resolved]
  - Pruritus [Recovered/Resolved with Sequelae]
  - Diarrhoea [Unknown]

NARRATIVE: CASE EVENT DATE: 20190307
